FAERS Safety Report 10441875 (Version 1)
Quarter: 2014Q3

REPORT INFORMATION
  Report Type: Spontaneous
  Country: US (occurrence: US)
  Receive Date: 20140908
  Receipt Date: 20140908
  Transmission Date: 20150326
  Serious: Yes (Other)
  Sender: FDA-Public Use
  Company Number: US-ABBVIE-14P-163-1277040-00

PATIENT
  Age: 65 Year
  Sex: Male

DRUGS (4)
  1. TESTOPEL [Suspect]
     Active Substance: TESTOSTERONE
     Indication: BLOOD TESTOSTERONE DECREASED
     Dates: start: 20120723, end: 201210
  2. ANDROGEL [Suspect]
     Active Substance: TESTOSTERONE
     Dates: start: 201211
  3. ANDROGEL [Suspect]
     Active Substance: TESTOSTERONE
     Indication: BLOOD TESTOSTERONE DECREASED
     Dates: start: 20120416, end: 20120723
  4. TESTOPEL [Suspect]
     Active Substance: TESTOSTERONE
     Dates: start: 20131009, end: 20131029

REACTIONS (11)
  - Anxiety [Unknown]
  - Myocardial infarction [Unknown]
  - Social problem [Unknown]
  - Economic problem [Unknown]
  - Cardiovascular disorder [Unknown]
  - Pain [Unknown]
  - Chest pain [Not Recovered/Not Resolved]
  - Anhedonia [Unknown]
  - Acute myocardial infarction [Unknown]
  - Fear [Unknown]
  - Impaired work ability [Unknown]

NARRATIVE: CASE EVENT DATE: 20120512
